FAERS Safety Report 16406732 (Version 7)
Quarter: 2021Q1

REPORT INFORMATION
  Report Type: Spontaneous
  Country: DE (occurrence: DE)
  Receive Date: 20190607
  Receipt Date: 20210113
  Transmission Date: 20210419
  Serious: Yes (Other)
  Sender: FDA-Public Use
  Company Number: PHHY2019DE131179

PATIENT
  Sex: Male

DRUGS (11)
  1. CO?DIOVAN [Suspect]
     Active Substance: HYDROCHLOROTHIAZIDE\VALSARTAN
     Dosage: UNK (160/12.5 MG)
     Route: 065
     Dates: start: 201009, end: 201407
  2. VALSARTAN ? 1 A PHARMA PLUS 160 MG/12,5 MG FILMTABLETTEN [Suspect]
     Active Substance: HYDROCHLOROTHIAZIDE\VALSARTAN
     Indication: HYPERTENSION
     Dosage: UNK UNK, QD (160/12.5 MG)
     Route: 065
     Dates: start: 20140621, end: 201502
  3. VALSARTAN. [Suspect]
     Active Substance: VALSARTAN
     Indication: HYPERTENSION
     Dosage: UNK, QD (160/12.5 MG)
     Route: 065
     Dates: start: 201209
  4. VALSACOR COMP [Concomitant]
     Active Substance: HYDROCHLOROTHIAZIDE\VALSARTAN
     Dosage: UNK (160/12.5 MG)
     Route: 065
     Dates: start: 201807
  5. CO?DIOVAN [Suspect]
     Active Substance: HYDROCHLOROTHIAZIDE\VALSARTAN
     Dosage: UNK (160/12.5 MG)
     Route: 065
     Dates: start: 201002, end: 201008
  6. VALSACOR COMP [Concomitant]
     Active Substance: HYDROCHLOROTHIAZIDE\VALSARTAN
     Dosage: UNK (160/12.5 MG)
     Route: 065
     Dates: start: 201209, end: 201209
  7. CO?DIOVAN [Suspect]
     Active Substance: HYDROCHLOROTHIAZIDE\VALSARTAN
     Dosage: UNK (320/12.5 MG)
     Route: 065
     Dates: start: 201008, end: 201009
  8. CO?DIOVAN [Suspect]
     Active Substance: HYDROCHLOROTHIAZIDE\VALSARTAN
     Indication: HYPERTENSION
     Dosage: 1 DF, QD
     Route: 065
     Dates: start: 2000
  9. VALSARTAN ? 1 A PHARMA PLUS 160 MG/12,5 MG FILMTABLETTEN [Suspect]
     Active Substance: HYDROCHLOROTHIAZIDE\VALSARTAN
     Dosage: UNK UNK, QD (160/12.5 MG)
     Route: 065
     Dates: start: 201506, end: 201807
  10. VALSACOR COMP [Concomitant]
     Active Substance: HYDROCHLOROTHIAZIDE\VALSARTAN
     Indication: PRODUCT USED FOR UNKNOWN INDICATION
     Dosage: 160 MG, UNK
     Route: 065
     Dates: start: 20170703
  11. VALSACOR COMP [Concomitant]
     Active Substance: HYDROCHLOROTHIAZIDE\VALSARTAN
     Dosage: UNK (160/12.5 MG)
     Route: 065
     Dates: start: 201502, end: 201506

REACTIONS (11)
  - Listless [Unknown]
  - Quality of life decreased [Unknown]
  - Emotional distress [Unknown]
  - Fear [Unknown]
  - Testicular cyst [Unknown]
  - Renal cyst [Unknown]
  - Mental disorder [Unknown]
  - Fatigue [Unknown]
  - Anxiety [Unknown]
  - Disturbance in attention [Unknown]
  - Sleep disorder [Unknown]

NARRATIVE: CASE EVENT DATE: 2005
